FAERS Safety Report 5947372-4 (Version None)
Quarter: 2008Q4

REPORT INFORMATION
  Report Type: 
  Country: None (occurrence: None)
  Receive Date: 20081110
  Receipt Date: 20081029
  Transmission Date: 20090506
  Serious: Yes (Other)
  Sender: FDA-Public Use
  Company Number: US-PFIZER INC-2008045549

PATIENT

DRUGS (4)
  1. SUTENT [Suspect]
     Dates: start: 20080201
  2. PEPCID [Concomitant]
  3. ULTRAM [Concomitant]
  4. TESSALON [Concomitant]

REACTIONS (1)
  - VASCULITIS [None]
